FAERS Safety Report 8990709 (Version 2)
Quarter: 2013Q1

REPORT INFORMATION
  Report Type: Spontaneous
  Country: US (occurrence: US)
  Receive Date: 20121228
  Receipt Date: 20130115
  Transmission Date: 20140127
  Serious: No
  Sender: FDA-Public Use
  Company Number: US-PFIZER INC-2012330688

PATIENT
  Age: 44 Year
  Sex: Female
  Weight: 86.17 kg

DRUGS (8)
  1. LYRICA [Suspect]
     Indication: DIABETIC NEUROPATHY
     Dosage: 150 MG, 2X/DAY
     Route: 048
     Dates: start: 2012, end: 201212
  2. LYRICA [Suspect]
     Indication: OSTEOARTHRITIS
  3. LISINOPRIL [Concomitant]
     Indication: HYPERTENSION
     Dosage: UNK
  4. FLEXERIL [Concomitant]
     Indication: OSTEOARTHRITIS
     Dosage: UNK
  5. FLEXERIL [Concomitant]
     Indication: MUSCLE SPASMS
  6. SYNTHROID [Concomitant]
     Indication: HYPOTHYROIDISM
     Dosage: UNK
  7. LANTUS [Concomitant]
     Indication: DIABETES MELLITUS
     Dosage: UNK
  8. METFORMIN [Concomitant]
     Indication: DIABETES MELLITUS
     Dosage: UNK

REACTIONS (4)
  - Arthralgia [Not Recovered/Not Resolved]
  - Musculoskeletal pain [Not Recovered/Not Resolved]
  - Pain in extremity [Not Recovered/Not Resolved]
  - Off label use [Unknown]
